FAERS Safety Report 12448128 (Version 1)
Quarter: 2016Q2

REPORT INFORMATION
  Report Type: Spontaneous
  Country: IT (occurrence: IT)
  Receive Date: 20160608
  Receipt Date: 20160608
  Transmission Date: 20160815
  Serious: Yes (Hospitalization, Other)
  Sender: FDA-Public Use
  Company Number: IT-CELGENEUS-ITA-2016055630

PATIENT
  Sex: Female

DRUGS (1)
  1. AZACITIDINE INJECTABLE [Suspect]
     Active Substance: AZACITIDINE
     Indication: ANAEMIA
     Route: 065

REACTIONS (8)
  - Sideroblastic anaemia [Not Recovered/Not Resolved]
  - Type 1 diabetes mellitus [Unknown]
  - Multiple lentigines syndrome [Unknown]
  - Tooth disorder [Unknown]
  - Mitochondrial myopathy [Not Recovered/Not Resolved]
  - Lactic acidosis [Not Recovered/Not Resolved]
  - Abasia [Unknown]
  - Gastroenteritis [Unknown]
